FAERS Safety Report 17063937 (Version 1)
Quarter: 2019Q4

REPORT INFORMATION
  Report Type: Spontaneous
  Country: DE (occurrence: DE)
  Receive Date: 20191122
  Receipt Date: 20191122
  Transmission Date: 20200122
  Serious: Yes (Other)
  Sender: FDA-Public Use
  Company Number: DE-SA-2019SA321398

PATIENT
  Age: 54 Year
  Sex: Female

DRUGS (4)
  1. DULOXETINE. [Concomitant]
     Active Substance: DULOXETINE
  2. AUBAGIO [Suspect]
     Active Substance: TERIFLUNOMIDE
     Indication: MULTIPLE SCLEROSIS
     Dosage: UNK
     Dates: start: 201909
  3. GABAPENTIN. [Concomitant]
     Active Substance: GABAPENTIN
  4. PLEGRIDY [Concomitant]
     Active Substance: PEGINTERFERON BETA-1A
     Indication: ENCEPHALOMYELITIS
     Dosage: UNK
     Dates: start: 201904, end: 2019

REACTIONS (3)
  - Lymphopenia [Unknown]
  - Granulocytopenia [Unknown]
  - Leukopenia [Unknown]
